FAERS Safety Report 6913383-5 (Version None)
Quarter: 2010Q3

REPORT INFORMATION
  Report Type: 
  Country: None (occurrence: None)
  Receive Date: 20100803
  Receipt Date: 20100726
  Transmission Date: 20110219
  Serious: Yes (Other)
  Sender: FDA-Public Use
  Company Number: 2010SP040709

PATIENT
  Sex: Female

DRUGS (1)
  1. PEGINTERFERON ALFA-2B [Suspect]
     Indication: HEPATITIS C

REACTIONS (2)
  - HAEMOPTYSIS [None]
  - PYREXIA [None]
